FAERS Safety Report 7590484-2 (Version None)
Quarter: 2011Q3

REPORT INFORMATION
  Report Type: 
  Country: None (occurrence: None)
  Receive Date: 20110705
  Receipt Date: 20110701
  Transmission Date: 20111222
  Serious: Yes (Hospitalization, Other)
  Sender: FDA-Public Use
  Company Number: CN-BAYER-2011-053905

PATIENT
  Age: 82 Year
  Sex: Female

DRUGS (1)
  1. AVELOX [Suspect]
     Indication: PNEUMONIA
     Dosage: 400 MG, QD, SPEED OF DRIP INFUSION WAS 2.5 ML/MIN
     Route: 041
     Dates: start: 20100101, end: 20100101

REACTIONS (7)
  - ERYTHEMA [None]
  - DYSPNOEA [None]
  - ANAPHYLACTIC REACTION [None]
  - HYPOAESTHESIA [None]
  - OBSTRUCTIVE AIRWAYS DISORDER [None]
  - ANXIETY [None]
  - HYPOAESTHESIA ORAL [None]
